FAERS Safety Report 7507518-3 (Version None)
Quarter: 2011Q2

REPORT INFORMATION
  Report Type: 
  Country: None (occurrence: None)
  Receive Date: 20110526
  Receipt Date: 20101011
  Transmission Date: 20111010
  Serious: No
  Sender: FDA-Public Use
  Company Number: US-MYLANLABS-2010S1018880

PATIENT
  Sex: Female

DRUGS (9)
  1. KEPPRA [Concomitant]
     Indication: CONVULSION
  2. NORVASC [Concomitant]
     Indication: BLOOD PRESSURE INCREASED
  3. SERTRALINE HYDROCHLORIDE [Concomitant]
     Indication: DEPRESSION
  4. NEXIUM [Concomitant]
     Indication: GASTROOESOPHAGEAL REFLUX DISEASE
  5. CALCIUM CARBONATE [Concomitant]
     Indication: OSTEOPOROSIS
  6. FOSAMAX [Concomitant]
     Indication: OSTEOPOROSIS
     Dosage: Q SUNDAYS
  7. ASPIRIN [Concomitant]
  8. ZOLPIDEM TARTRATE [Suspect]
     Indication: INSOMNIA
     Route: 048
     Dates: start: 20100101
  9. CRESTOR [Concomitant]
     Indication: BLOOD CHOLESTEROL

REACTIONS (2)
  - INSOMNIA [None]
  - DRUG INEFFECTIVE [None]
